FAERS Safety Report 5640116-5 (Version None)
Quarter: 2008Q1

REPORT INFORMATION
  Report Type: 
  Country: None (occurrence: None)
  Receive Date: 20080225
  Receipt Date: 20080211
  Transmission Date: 20080703
  Serious: Yes (Hospitalization)
  Sender: FDA-Public Use
  Company Number: B0490430B

PATIENT
  Age: 55 Year
  Sex: Female
  Weight: 78.5176 kg

DRUGS (2)
  1. LAPATINIB TABLET (LAPATINIB) [Suspect]
     Indication: BREAST CANCER METASTATIC
     Dosage: PER DAY / ORAL
     Route: 048
     Dates: start: 20070828
  2. CAPECITABINE TABLET (CAPECITABINE) [Suspect]
     Indication: BREAST CANCER METASTATIC
     Dosage: ORAL
     Route: 048
     Dates: start: 20070828

REACTIONS (2)
  - DISEASE PROGRESSION [None]
  - PERICARDIAL EFFUSION MALIGNANT [None]
